FAERS Safety Report 7557230-X (Version None)
Quarter: 2011Q2

REPORT INFORMATION
  Report Type: 
  Country: None (occurrence: None)
  Receive Date: 20110620
  Receipt Date: 20110513
  Transmission Date: 20111010
  Serious: No
  Sender: FDA-Public Use
  Company Number: US-MYLANLABS-2011S1005380

PATIENT
  Age: 79 Year
  Sex: Male
  Weight: 83.92 kg

DRUGS (5)
  1. PERFOROMIST [Suspect]
     Indication: CHRONIC OBSTRUCTIVE PULMONARY DISEASE
     Route: 055
     Dates: start: 20110310
  2. BLOOD PRESSURE MEDICATION [Concomitant]
     Dates: start: 20110225
  3. SPIRIVA [Concomitant]
  4. ALBUTEROL SULFATE AUTOHALER [Concomitant]
  5. PROTON PUMP INHIBITORS [Concomitant]

REACTIONS (1)
  - DIZZINESS [None]
